FAERS Safety Report 21589864 (Version 1)
Quarter: 2022Q4

REPORT INFORMATION
  Report Type: Spontaneous
  Country: DE (occurrence: DE)
  Receive Date: 20221114
  Receipt Date: 20221114
  Transmission Date: 20230112
  Serious: Yes (Hospitalization)
  Sender: FDA-Public Use
  Company Number: None

PATIENT
  Age: 84 Year
  Sex: Male
  Weight: 77 kg

DRUGS (13)
  1. ALLOPURINOL [Suspect]
     Active Substance: ALLOPURINOL
     Indication: Product used for unknown indication
     Dosage: 300 MG, 0-0.5-0-0, TABLETS
  2. LENALIDOMIDE [Suspect]
     Active Substance: LENALIDOMIDE
     Indication: Product used for unknown indication
     Dosage: 25 MG, 0-1-0-0, CAPSULES
  3. RAMIPRIL [Suspect]
     Active Substance: RAMIPRIL
     Indication: Product used for unknown indication
     Dosage: 2.5 MG, 1-0-0-0, TABLETS
  4. ASPIRIN [Concomitant]
     Active Substance: ASPIRIN
     Dosage: 100MG, 0-1-0-0, TABLETS
  5. AMITRIPTYLINE [Concomitant]
     Active Substance: AMITRIPTYLINE
     Dosage: 10 MG, 1-0-0-0, TABLETS
  6. ATENOLOL [Concomitant]
     Active Substance: ATENOLOL
     Dosage: 50 MG, 0.5-0-0.5-0, TABLETS
  7. DEXAMETHASONE [Concomitant]
     Active Substance: DEXAMETHASONE
     Dosage: 33.23 MG, ACCORDING TO THE SCHEME, SOLUTION FOR INJECTION / INFUSION
  8. IRON [Concomitant]
     Active Substance: IRON
     Dosage: 50 MG, 1-1-1-0, PROLONGED-RELEASE CAPSULES
  9. POTASSIUM IODIDE [Concomitant]
     Active Substance: POTASSIUM IODIDE
     Dosage: 131 MCG, 0-1-0-0, TABLETS
  10. ALBUTEROL [Concomitant]
     Active Substance: ALBUTEROL
     Dosage: 0.1 MG, AS REQUIRED, METERED DOSE INHALER
  11. SIMVASTATIN [Concomitant]
     Active Substance: SIMVASTATIN
     Dosage: 40 MG, 0-0-1-0, TABLETS
  12. TAMSULOSIN [Concomitant]
     Active Substance: TAMSULOSIN
     Dosage: 0.4 MG, 1-0-0-0, PROLONGED-RELEASE TABLETS
  13. AMITRIPTYLINE [Concomitant]
     Active Substance: AMITRIPTYLINE
     Dosage: 50 MG, 0-0-1-0, TABLETS

REACTIONS (8)
  - Muscular weakness [Unknown]
  - Dysuria [Unknown]
  - Acute kidney injury [Unknown]
  - Fatigue [Unknown]
  - Product prescribing error [Unknown]
  - General physical health deterioration [Unknown]
  - Hypokalaemia [Unknown]
  - Renal impairment [Unknown]
